FAERS Safety Report 5923088-5 (Version None)
Quarter: 2008Q4

REPORT INFORMATION
  Report Type: 
  Country: None (occurrence: None)
  Receive Date: 20081018
  Receipt Date: 20081009
  Transmission Date: 20090506
  Serious: Yes (Other)
  Sender: FDA-Public Use
  Company Number: US-PFIZER INC-2008085203

PATIENT
  Sex: Female
  Weight: 93.181 kg

DRUGS (5)
  1. CADUET [Suspect]
     Indication: HYPERTENSION
     Dosage: TEXT:5/10MG
     Dates: start: 20060101, end: 20080801
  2. CADUET [Suspect]
     Indication: BLOOD CHOLESTEROL INCREASED
  3. WELLBUTRIN SR [Concomitant]
     Indication: ANXIETY
  4. INDERAL [Concomitant]
     Indication: ANXIETY
  5. DRUG, UNSPECIFIED [Concomitant]

REACTIONS (9)
  - BONE PAIN [None]
  - BURNING SENSATION [None]
  - DYSPNOEA [None]
  - FALL [None]
  - FEELING ABNORMAL [None]
  - JOINT SPRAIN [None]
  - MUSCULOSKELETAL STIFFNESS [None]
  - NERVOUS SYSTEM DISORDER [None]
  - WALKING DISABILITY [None]
